FAERS Safety Report 17984106 (Version 1)
Quarter: 2020Q3

REPORT INFORMATION
  Report Type: Spontaneous
  Country: US (occurrence: US)
  Receive Date: 20200703
  Receipt Date: 20200703
  Transmission Date: 20201103
  Serious: Yes (Disabling)
  Sender: FDA-Public Use
  Company Number: None

PATIENT
  Age: 18 Year
  Sex: Female
  Weight: 97.52 kg

DRUGS (1)
  1. NEXPLANON [Suspect]
     Active Substance: ETONOGESTREL
     Dates: start: 20180119

REACTIONS (5)
  - Migraine [None]
  - Pain [None]
  - Mood swings [None]
  - Weight increased [None]
  - Menorrhagia [None]

NARRATIVE: CASE EVENT DATE: 20180120
